FAERS Safety Report 6048531-5 (Version None)
Quarter: 2009Q1

REPORT INFORMATION
  Report Type: 
  Country: None (occurrence: None)
  Receive Date: 20090123
  Receipt Date: 20090113
  Transmission Date: 20090719
  Serious: Yes (Other)
  Sender: FDA-Public Use
  Company Number: CN-BRISTOL-MYERS SQUIBB COMPANY-14473904

PATIENT
  Age: 59 Year
  Sex: Male

DRUGS (1)
  1. CEFEPIME [Suspect]
     Dosage: 1 G BID FOR 3 DAYS, FROM THE 4TH DAY, 3 G PER DAY FOR 2 DAYS
     Route: 041

REACTIONS (1)
  - DELIRIUM [None]
